FAERS Safety Report 6811461-2 (Version None)
Quarter: 2010Q2

REPORT INFORMATION
  Report Type: 
  Country: None (occurrence: None)
  Receive Date: 20100629
  Receipt Date: 20100629
  Transmission Date: 20101027
  Serious: Yes (Other)
  Sender: FDA-Public Use
  Company Number: None

PATIENT
  Age: 43 Year
  Sex: Female

DRUGS (2)
  1. TUMS ULTRA 1000 (PEPPERMINT) [Suspect]
     Indication: NAUSEA
     Dosage: 2 - 3 TABLETS CHEW 2-3 TABLETS AS SYMPTOMS OCCUR, OR AS DIRECTED BY A DOCTOR
     Dates: start: 20100623, end: 20100623
  2. TUMS ULTRA 1000 (PEPPERMINT) [Suspect]
     Indication: VOMITING
     Dosage: 2 - 3 TABLETS CHEW 2-3 TABLETS AS SYMPTOMS OCCUR, OR AS DIRECTED BY A DOCTOR
     Dates: start: 20100623, end: 20100623

REACTIONS (6)
  - HYPERSENSITIVITY [None]
  - JOINT SWELLING [None]
  - MALAISE [None]
  - NAUSEA [None]
  - OEDEMA PERIPHERAL [None]
  - VOMITING [None]
